FAERS Safety Report 4603949-X (Version None)
Quarter: 2005Q1

REPORT INFORMATION
  Report Type: 
  Country: None (occurrence: None)
  Receive Date: 20050310
  Receipt Date: 20050303
  Transmission Date: 20050727
  Serious: Yes (Hospitalization)
  Sender: FDA-Public Use
  Company Number: GB-GLAXOSMITHKLINE-B0373664A

PATIENT
  Age: 82 Year
  Sex: Male
  Weight: 14 kg

DRUGS (6)
  1. AVANDIA [Suspect]
     Indication: DIABETES MELLITUS
     Dosage: 4MG PER DAY
     Route: 048
     Dates: end: 20050216
  2. GLICLAZIDE [Concomitant]
     Indication: DIABETES MELLITUS
     Dosage: 80MG TWICE PER DAY
     Route: 048
  3. LANSOPRAZOLE [Concomitant]
     Indication: GASTRIC ULCER
     Dosage: 30MG PER DAY
     Route: 048
  4. ALFUZOSIN [Concomitant]
     Dosage: 10MG PER DAY
     Route: 048
  5. FINASTERIDE [Concomitant]
     Dosage: 5MG PER DAY
     Route: 048
  6. THYROXINE [Concomitant]
     Indication: HYPOTHYROIDISM
     Dosage: 50MCG PER DAY
     Route: 048

REACTIONS (3)
  - DIFFICULTY IN WALKING [None]
  - DYSPNOEA [None]
  - ORTHOPNOEA [None]
